FAERS Safety Report 5978446-X (Version None)
Quarter: 2008Q4

REPORT INFORMATION
  Report Type: 
  Country: None (occurrence: None)
  Receive Date: 20081126
  Receipt Date: 20081113
  Transmission Date: 20090506
  Serious: Yes (Hospitalization)
  Sender: FDA-Public Use
  Company Number: 2008-182964-NL

PATIENT
  Age: 28 Year
  Sex: Female
  Weight: 43.1 kg

DRUGS (4)
  1. IMPLANON [Suspect]
     Indication: CONTRACEPTION
     Dosage: SUBDERMAL, UNKNOWN
     Dates: start: 20080721, end: 20080801
  2. LEXAPRO [Concomitant]
  3. XANAX [Concomitant]
  4. EFFEXOR [Concomitant]

REACTIONS (6)
  - CARDIAC FAILURE [None]
  - CARDIOMYOPATHY [None]
  - CEREBRAL ARTERY EMBOLISM [None]
  - LOSS OF CONSCIOUSNESS [None]
  - MONOPLEGIA [None]
  - THROMBOCYTOPENIA [None]
